FAERS Safety Report 9126472 (Version 1)
Quarter: 2013Q1

REPORT INFORMATION
  Report Type: Spontaneous
  Country: BR (occurrence: BR)
  Receive Date: 20130117
  Receipt Date: 20130117
  Transmission Date: 20140127
  Serious: Yes (Other)
  Sender: FDA-Public Use
  Company Number: PHHY2013BR004144

PATIENT
  Sex: Male

DRUGS (1)
  1. DIOVAN AMLO FIX [Suspect]
     Dosage: VALSARTAN 160MG AND AMLODIPINE 5MG, UNK

REACTIONS (2)
  - Cerebrovascular accident [Unknown]
  - Cough [Unknown]
